FAERS Safety Report 23142373 (Version 1)
Quarter: 2023Q4

REPORT INFORMATION
  Report Type: Spontaneous
  Country: US (occurrence: None)
  Receive Date: 20231102
  Receipt Date: 20231102
  Transmission Date: 20240110
  Serious: Yes (Disabling)
  Sender: FDA-Public Use
  Company Number: None

PATIENT
  Age: 39 Year
  Sex: Female
  Weight: 60.3 kg

DRUGS (1)
  1. FLUOXETINE [Suspect]
     Active Substance: FLUOXETINE HYDROCHLORIDE
     Indication: Anxiety
     Dosage: OTHER QUANTITY : 1 TABLESPOON(S);?
     Route: 048
     Dates: start: 20230801, end: 20231102

REACTIONS (3)
  - Hyperhidrosis [None]
  - Palpitations [None]
  - Tachyphrenia [None]

NARRATIVE: CASE EVENT DATE: 20231030
